FAERS Safety Report 18279320 (Version 1)
Quarter: 2020Q3

REPORT INFORMATION
  Report Type: Spontaneous
  Country: US (occurrence: DE)
  Receive Date: 20200917
  Receipt Date: 20200917
  Transmission Date: 20201103
  Serious: Yes (Other)
  Sender: FDA-Public Use
  Company Number: US-BAYER-2020-190315

PATIENT

DRUGS (12)
  1. GRAMICIDIN;NEOMYCIN;POLYMYXIN B [Suspect]
     Active Substance: GRAMICIDIN\NEOMYCIN\POLYMYXIN B SULFATE
     Indication: KERATITIS BACTERIAL
     Route: 050
  2. PHENYLEPHRINE [Suspect]
     Active Substance: PHENYLEPHRINE HYDROCHLORIDE
     Indication: KLEBSIELLA INFECTION
  3. PREDNISOLONE. [Suspect]
     Active Substance: PREDNISOLONE
     Indication: KLEBSIELLA INFECTION
  4. CYCLOPENTOLATE HYDROCHLORIDE. [Suspect]
     Active Substance: CYCLOPENTOLATE HYDROCHLORIDE
     Indication: KERATITIS BACTERIAL
     Route: 061
  5. PHENYLEPHRINE [Suspect]
     Active Substance: PHENYLEPHRINE HYDROCHLORIDE
     Indication: KERATITIS BACTERIAL
     Route: 061
  6. LEVOFLOXACIN. [Suspect]
     Active Substance: LEVOFLOXACIN
     Indication: KERATITIS BACTERIAL
     Route: 061
  7. MOXIFLOXACIN ORAL [Suspect]
     Active Substance: MOXIFLOXACIN
     Indication: KERATITIS BACTERIAL
     Route: 048
  8. GRAMICIDIN;NEOMYCIN;POLYMYXIN B [Suspect]
     Active Substance: GRAMICIDIN\NEOMYCIN\POLYMYXIN B SULFATE
     Indication: KLEBSIELLA INFECTION
  9. LEVOFLOXACIN. [Suspect]
     Active Substance: LEVOFLOXACIN
     Indication: KLEBSIELLA INFECTION
  10. MOXIFLOXACIN ORAL [Suspect]
     Active Substance: MOXIFLOXACIN
     Indication: KLEBSIELLA INFECTION
  11. CYCLOPENTOLATE HYDROCHLORIDE. [Suspect]
     Active Substance: CYCLOPENTOLATE HYDROCHLORIDE
     Indication: KLEBSIELLA INFECTION
  12. PREDNISOLONE. [Suspect]
     Active Substance: PREDNISOLONE
     Indication: KERATITIS BACTERIAL
     Route: 048

REACTIONS (1)
  - Drug ineffective [Not Recovered/Not Resolved]
